FAERS Safety Report 7928623-3 (Version None)
Quarter: 2011Q4

REPORT INFORMATION
  Report Type: 
  Country: None (occurrence: None)
  Receive Date: 20111118
  Receipt Date: 20111115
  Transmission Date: 20120403
  Serious: Yes (Death)
  Sender: FDA-Public Use
  Company Number: CN-CELGENEUS-CHNAB-11-0268

PATIENT
  Sex: Female

DRUGS (8)
  1. CISPLATIN [Concomitant]
     Dosage: 60 MILLIGRAM
     Route: 065
     Dates: start: 20110323
  2. NUTRITIONAL SUPPORT [Concomitant]
     Indication: NUTRITIONAL SUPPORT
  3. PACLITAXEL [Concomitant]
     Dosage: 2 BOTTLES
     Route: 041
     Dates: start: 20110331
  4. ABRAXANE [Suspect]
     Dosage: 40 MILLILITER
     Route: 065
     Dates: start: 20110331, end: 20110331
  5. SODIUM CHLORIDE [Concomitant]
     Dosage: 20 MILLILITER
     Route: 041
     Dates: start: 20110331
  6. FLUOROURACIL [Concomitant]
     Dosage: 1 GRAM
     Route: 033
     Dates: start: 20110323
  7. MITOMYCIN [Concomitant]
  8. DEXAMETHASONE [Concomitant]
     Dosage: 5 MILLILITER
     Route: 065
     Dates: start: 20110301

REACTIONS (1)
  - ANAPHYLACTIC SHOCK [None]
